FAERS Safety Report 7354449-8 (Version None)
Quarter: 2011Q1

REPORT INFORMATION
  Report Type: 
  Country: None (occurrence: None)
  Receive Date: 20110316
  Receipt Date: 20110222
  Transmission Date: 20110831
  Serious: Yes (Other)
  Sender: FDA-Public Use
  Company Number: US-BAYER-201037830NA

PATIENT
  Sex: Female
  Weight: 79 kg

DRUGS (11)
  1. CALCIUMCARBONAT [Concomitant]
  2. FUROSEMIDE [Concomitant]
  3. PREDNISOLONE ACETATE [Concomitant]
  4. ALESSE [Concomitant]
  5. VITAMIN D [Concomitant]
  6. YAZ [Suspect]
     Indication: PRODUCT USED FOR UNKNOWN INDICATION
     Route: 048
     Dates: start: 20081001, end: 20090601
  7. UNCODEABLE ^UNCLASSIFIABLE^ [Concomitant]
     Indication: BLOOD PRESSURE MANAGEMENT
  8. VENLAFAXINE HYDROCHLORIDE [Concomitant]
  9. HYDROCHLOROTHIAZIDE [Concomitant]
  10. UNCODEABLE ^UNCLASSIFIABLE^ [Concomitant]
  11. POTASSIUM CHLORIDE [Concomitant]

REACTIONS (2)
  - CHOLECYSTECTOMY [None]
  - CHOLECYSTITIS [None]
